FAERS Safety Report 4661773-6 (Version None)
Quarter: 2005Q2

REPORT INFORMATION
  Report Type: 
  Country: None (occurrence: None)
  Receive Date: 20050512
  Receipt Date: 20050512
  Transmission Date: 20051028
  Serious: Yes (Hospitalization)
  Sender: FDA-Public Use
  Company Number: None

PATIENT
  Age: 72 Year
  Sex: Female
  Weight: 59 kg

DRUGS (6)
  1. VOLTAREN [Suspect]
     Dosage: 50 MG DAILY
  2. DYAZIDE [Concomitant]
  3. SYNTHROID [Concomitant]
  4. ZOCOR [Concomitant]
  5. NAMENDA [Concomitant]
  6. HALDOL [Concomitant]

REACTIONS (4)
  - ANAPHYLACTIC REACTION [None]
  - RASH [None]
  - SWOLLEN TONGUE [None]
  - WHEEZING [None]
